FAERS Safety Report 9292680 (Version 1)
Quarter: 2013Q1

REPORT INFORMATION
  Report Type: Spontaneous
  Country: US (occurrence: None)
  Receive Date: 20121214
  Receipt Date: 20121214
  Transmission Date: 20140127
  Serious: Yes (Other)
  Sender: FDA-Public Use
  Company Number: US-JNJFOC-2007310933

PATIENT
  Age: 58 Year
  Sex: Female
  Weight: 78.02 kg

DRUGS (8)
  1. SUDAFED 24 HOUR TABLETS (PSEUDOPHEDRINE HYDROCHLORIDE) TABLET [Suspect]
     Indication: EMPHYSEMA
     Dosage: 240 MG, 2 IN 1 D, ORAL
     Route: 048
     Dates: start: 200610
  2. OXYCONTIN (OXYCODONE HYDROCHLORIDE)UNKNOWN [Concomitant]
  3. VICDOIN (VICODIN) [Concomitant]
  4. FLEXERIL (CYCLOBENZAPRINE HYDROCHLORIDE) [Concomitant]
  5. VERPAMIL (VERPAMIL) [Concomitant]
  6. ENLAPRIL MALEATE (ENAPRIL MALEATE) [Concomitant]
  7. ALBUTEROL (SALBUTAMOL) [Concomitant]
  8. PLAVIX (CLOPIDOGREL) [Concomitant]

REACTIONS (1)
  - Intentional overdose [None]
